FAERS Safety Report 21783231 (Version 1)
Quarter: 2022Q4

REPORT INFORMATION
  Report Type: Spontaneous
  Country: JP (occurrence: JP)
  Receive Date: 20221227
  Receipt Date: 20221227
  Transmission Date: 20230113
  Serious: No
  Sender: FDA-Public Use
  Company Number: JP-MSD-2212JPN002882J

PATIENT
  Age: 89 Year
  Sex: Female

DRUGS (6)
  1. LAGEVRIO [Suspect]
     Active Substance: MOLNUPIRAVIR
     Indication: COVID-19 treatment
     Dosage: 800 MILLIGRAM, QD
     Route: 048
     Dates: start: 20221121, end: 20221121
  2. LAGEVRIO [Suspect]
     Active Substance: MOLNUPIRAVIR
     Dosage: 800 MILLIGRAM, BID
     Route: 048
     Dates: start: 20221122, end: 20221122
  3. LAGEVRIO [Suspect]
     Active Substance: MOLNUPIRAVIR
     Dosage: 800 MILLIGRAM, QD
     Route: 048
     Dates: start: 20221123, end: 20221124
  4. ASVERIN (TIPEPIDINE HIBENZATE) [Concomitant]
     Active Substance: TIPEPIDINE HIBENZATE
     Indication: COVID-19 treatment
     Dosage: UNK
     Route: 065
  5. CALONAL [Concomitant]
     Active Substance: ACETAMINOPHEN
     Indication: COVID-19 treatment
     Dosage: UNK
     Route: 065
  6. CARBOCYSTEINE [Concomitant]
     Active Substance: CARBOCYSTEINE
     Indication: COVID-19 treatment
     Dosage: UNK
     Route: 065

REACTIONS (4)
  - Dizziness [Recovered/Resolved]
  - Dizziness [Recovered/Resolved]
  - Product use issue [Unknown]
  - Underdose [Unknown]

NARRATIVE: CASE EVENT DATE: 20221123
